FAERS Safety Report 9889147 (Version 1)
Quarter: 2014Q1

REPORT INFORMATION
  Report Type: Spontaneous
  Country: US (occurrence: None)
  Receive Date: 20140207
  Receipt Date: 20140207
  Transmission Date: 20141002
  Serious: Yes (Other)
  Sender: FDA-Public Use
  Company Number: 20140044

PATIENT
  Age: 38 Year
  Sex: Male

DRUGS (1)
  1. ADENOSINE [Suspect]
     Indication: ARRHYTHMIA
     Dosage: 6 MG AND 12 MG
     Route: 040

REACTIONS (3)
  - Arteriospasm coronary [None]
  - Bundle branch block right [None]
  - Abscess limb [None]
